FAERS Safety Report 19684880 (Version 1)
Quarter: 2021Q3

REPORT INFORMATION
  Report Type: Spontaneous
  Country: US (occurrence: US)
  Receive Date: 20210810
  Receipt Date: 20210810
  Transmission Date: 20211014
  Serious: Yes (Hospitalization)
  Sender: FDA-Public Use
  Company Number: None

PATIENT
  Sex: Female
  Weight: 60 kg

DRUGS (5)
  1. METHOTREXATE. [Suspect]
     Active Substance: METHOTREXATE
  2. ONCASPAR [Suspect]
     Active Substance: PEGASPARGASE
  3. DEXAMETHASONE. [Concomitant]
     Active Substance: DEXAMETHASONE
  4. CYTARABINE. [Concomitant]
     Active Substance: CYTARABINE
  5. DAUNORUBICIN [Concomitant]
     Active Substance: DAUNORUBICIN

REACTIONS (5)
  - Haemorrhage intracranial [None]
  - Embolism [None]
  - Cerebral mass effect [None]
  - Platelet count decreased [None]
  - Cerebral thrombosis [None]

NARRATIVE: CASE EVENT DATE: 20210402
